FAERS Safety Report 19000334 (Version 1)
Quarter: 2021Q1

REPORT INFORMATION
  Report Type: Spontaneous
  Country: GB (occurrence: GB)
  Receive Date: 20210311
  Receipt Date: 20210311
  Transmission Date: 20210420
  Serious: Yes (Other)
  Sender: FDA-Public Use
  Company Number: GB-TEVA-2021-GB-1880987

PATIENT
  Age: 49 Year
  Sex: Male
  Weight: 87 kg

DRUGS (6)
  1. OMEPRAZOLE. [Interacting]
     Active Substance: OMEPRAZOLE
     Indication: ILL-DEFINED DISORDER
     Dosage: 20MG
     Route: 048
     Dates: start: 20201231, end: 20210106
  2. CLARITHROMYCIN. [Suspect]
     Active Substance: CLARITHROMYCIN
     Indication: ILL-DEFINED DISORDER
     Route: 048
     Dates: start: 20201231, end: 20210106
  3. CLARITHROMYCIN. [Interacting]
     Active Substance: CLARITHROMYCIN
     Indication: HELICOBACTER INFECTION
  4. OMEPRAZOLE. [Interacting]
     Active Substance: OMEPRAZOLE
     Indication: HELICOBACTER INFECTION
  5. METRONIDAZOL [Interacting]
     Active Substance: METRONIDAZOLE
     Indication: ILL-DEFINED DISORDER
     Route: 048
     Dates: start: 20201231, end: 20210106
  6. METRONIDAZOL [Interacting]
     Active Substance: METRONIDAZOLE
     Indication: HELICOBACTER INFECTION

REACTIONS (5)
  - Arrhythmia [Recovered/Resolved]
  - Drug interaction [Unknown]
  - Electrocardiogram QT prolonged [Recovered/Resolved]
  - Medication error [Unknown]
  - Cardiac flutter [Recovered/Resolved]

NARRATIVE: CASE EVENT DATE: 20210103
